FAERS Safety Report 6683299-0 (Version None)
Quarter: 2010Q2

REPORT INFORMATION
  Report Type: 
  Country: None (occurrence: None)
  Receive Date: 20100415
  Receipt Date: 20100406
  Transmission Date: 20101027
  Serious: Yes (Disabling)
  Sender: FDA-Public Use
  Company Number: ES-PFIZER INC-2010043093

PATIENT
  Age: 46 Year
  Sex: Female

DRUGS (2)
  1. LYRICA [Suspect]
     Indication: BACK PAIN
     Dosage: 75 MG, 2X/DAY
     Dates: start: 20090929, end: 20091002
  2. ANTINEURINA [Concomitant]

REACTIONS (4)
  - DIZZINESS [None]
  - HYPOREFLEXIA [None]
  - MUSCULAR WEAKNESS [None]
  - VISION BLURRED [None]
